FAERS Safety Report 8318938-1 (Version None)
Quarter: 2012Q2

REPORT INFORMATION
  Report Type: 
  Country: None (occurrence: None)
  Receive Date: 20120427
  Receipt Date: 20120419
  Transmission Date: 20120825
  Serious: Yes (Hospitalization, Disabling, Other)
  Sender: FDA-Public Use
  Company Number: US-JNJFOC-20120309518

PATIENT
  Sex: Male

DRUGS (14)
  1. XARELTO [Suspect]
     Indication: CEREBROVASCULAR ACCIDENT PROPHYLAXIS
     Route: 048
  2. CIALIS [Concomitant]
  3. MIRALAX [Concomitant]
  4. LISINOPRIL [Concomitant]
  5. AMLODIPINE [Concomitant]
  6. OMEPRAZOLE [Concomitant]
  7. XARELTO [Suspect]
     Indication: ATRIAL FIBRILLATION
     Route: 048
  8. ALLOPURINOL [Concomitant]
  9. METOPROLOL TARTRATE [Concomitant]
  10. LOVASTATIN [Concomitant]
  11. HYDROCHLOROTHIAZIDE [Concomitant]
  12. FLUOXETINE [Concomitant]
  13. UROCIT-K [Concomitant]
  14. ZOLPIDEM [Concomitant]

REACTIONS (2)
  - HAEMORRHAGE INTRACRANIAL [None]
  - HEADACHE [None]
